FAERS Safety Report 5621196-X (Version None)
Quarter: 2008Q1

REPORT INFORMATION
  Report Type: 
  Country: None (occurrence: None)
  Receive Date: 20080114
  Receipt Date: 20061215
  Transmission Date: 20080703
  Serious: Yes (Hospitalization)
  Sender: FDA-Public Use
  Company Number: A03200607535

PATIENT
  Sex: Male

DRUGS (2)
  1. PLAVIX [Suspect]
     Indication: HYPERCHOLESTEROLAEMIA
     Dosage: 75 MG QD - ORAL
     Route: 048
     Dates: end: 20040101
  2. PLAVIX [Suspect]
     Indication: HYPERTENSION
     Dosage: 75 MG QD - ORAL
     Route: 048
     Dates: end: 20040101

REACTIONS (6)
  - BLOOD COUNT ABNORMAL [None]
  - CHEST DISCOMFORT [None]
  - FATIGUE [None]
  - HAEMORRHAGE [None]
  - HEART RATE IRREGULAR [None]
  - RED BLOOD CELL COUNT DECREASED [None]
